FAERS Safety Report 16742446 (Version 1)
Quarter: 2019Q3

REPORT INFORMATION
  Report Type: Spontaneous
  Country: JP (occurrence: JP)
  Receive Date: 20190826
  Receipt Date: 20190826
  Transmission Date: 20191005
  Serious: Yes (Hospitalization)
  Sender: FDA-Public Use
  Company Number: JP-ALLERGAN-1930293US

PATIENT

DRUGS (2)
  1. URSODEOXYCHOLIC ACID - BP [Suspect]
     Active Substance: URSODIOL
     Indication: ANTIVIRAL PROPHYLAXIS
     Dosage: UNK
     Route: 048
  2. URSODEOXYCHOLIC ACID - BP [Suspect]
     Active Substance: URSODIOL
     Dosage: UNK
     Route: 048

REACTIONS (1)
  - Neutropenia [Unknown]
